FAERS Safety Report 10046105 (Version 1)
Quarter: 2014Q1

REPORT INFORMATION
  Report Type: Spontaneous
  Country: US (occurrence: US)
  Receive Date: 20140331
  Receipt Date: 20140331
  Transmission Date: 20141002
  Serious: Yes (Hospitalization, Other)
  Sender: FDA-Public Use
  Company Number: US-BIOGENIDEC-2014BI029217

PATIENT
  Age: 50 Year
  Sex: Female
  Weight: 57 kg

DRUGS (10)
  1. AVONEX [Suspect]
     Indication: MULTIPLE SCLEROSIS
     Route: 030
  2. AVONEX [Suspect]
     Indication: MULTIPLE SCLEROSIS
     Route: 030
     Dates: start: 20130216
  3. LAMICTAL [Concomitant]
     Indication: CONVULSION
  4. CYMBALTA [Concomitant]
  5. RESTORIL [Concomitant]
  6. XANAX [Concomitant]
  7. ZOCOR [Concomitant]
  8. LOSARTAN [Concomitant]
  9. METOPROLOL [Concomitant]
  10. NORCO [Concomitant]

REACTIONS (3)
  - Balance disorder [Not Recovered/Not Resolved]
  - Memory impairment [Not Recovered/Not Resolved]
  - Convulsion [Recovered/Resolved]
